FAERS Safety Report 5264807-3 (Version None)
Quarter: 2007Q1

REPORT INFORMATION
  Report Type: 
  Country: None (occurrence: None)
  Receive Date: 20061124
  Receipt Date: 20040615
  Transmission Date: 20070707
  Serious: No
  Sender: FDA-Public Use
  Company Number: 2004UW09782

PATIENT
  Age: 58 Year
  Sex: Male
  Weight: 89.3586 kg

DRUGS (4)
  1. ATACAND HCT [Suspect]
     Indication: HYPERTENSION
     Dosage: 32/12.5 MG
     Dates: start: 20040310, end: 20040506
  2. TOPROL-XL [Concomitant]
  3. AVANDIA [Concomitant]
  4. TRICOR [Concomitant]

REACTIONS (1)
  - ACUTE PRERENAL FAILURE [None]
